FAERS Safety Report 18709528 (Version 2)
Quarter: 2021Q1

REPORT INFORMATION
  Report Type: Report from Study
  Country: NL (occurrence: NL)
  Receive Date: 20210106
  Receipt Date: 20210115
  Transmission Date: 20210419
  Serious: Yes (Life-Threatening, Disabling, Other)
  Sender: FDA-Public Use
  Company Number: NL-PFIZER INC-2021004364

PATIENT
  Age: 64 Year
  Sex: Male

DRUGS (2)
  1. OXALIPLATIN. [Suspect]
     Active Substance: OXALIPLATIN
     Indication: COLON CANCER
     Dosage: 520 MG/M2, 4 CYCLICAL, INFUSION, CAPOX
     Route: 041
  2. CAPECITABINE. [Suspect]
     Active Substance: CAPECITABINE
     Indication: COLON CANCER
     Dosage: UNK, 4 CYCLICAL, INFUSION, CAPOX
     Route: 041

REACTIONS (10)
  - Hiccups [Unknown]
  - Malaise [Unknown]
  - Fatigue [Not Recovered/Not Resolved]
  - Neurotoxicity [Unknown]
  - Infusion site hypoaesthesia [Recovered/Resolved]
  - Disturbance in attention [Not Recovered/Not Resolved]
  - Infusion site pain [Recovered/Resolved]
  - Loss of personal independence in daily activities [Unknown]
  - Impaired quality of life [Unknown]
  - Neuropathy peripheral [Unknown]
